FAERS Safety Report 20962861 (Version 2)
Quarter: 2025Q1

REPORT INFORMATION
  Report Type: Spontaneous
  Country: US (occurrence: US)
  Receive Date: 20220615
  Receipt Date: 20250127
  Transmission Date: 20250409
  Serious: No
  Sender: BRISTOL-MYERS SQUIBB COMPANY
  Company Number: US-BRISTOL-MYERS SQUIBB COMPANY-2022-054573

PATIENT
  Age: 76 Year
  Sex: Male

DRUGS (1)
  1. REVLIMID [Suspect]
     Active Substance: LENALIDOMIDE
     Indication: Renal cyst
     Dosage: FREQUENCY: FOR 21 DAYS ON THEN 7 DAYS OFF EVERY 28 DAYS
     Route: 048

REACTIONS (2)
  - Platelet count decreased [Unknown]
  - Intentional product use issue [Unknown]
